FAERS Safety Report 11809380 (Version 2)
Quarter: 2016Q3

REPORT INFORMATION
  Report Type: Spontaneous
  Country: ET (occurrence: ET)
  Receive Date: 20151207
  Receipt Date: 20160726
  Transmission Date: 20161109
  Serious: Yes (Other)
  Sender: FDA-Public Use
  Company Number: ET-BRISTOL-MYERS SQUIBB COMPANY-19912997

PATIENT
  Age: 35 Year
  Sex: Female

DRUGS (4)
  1. ZIDOVUDINE. [Concomitant]
     Active Substance: ZIDOVUDINE
     Indication: HIV INFECTION
     Dosage: UNK
     Route: 065
  2. EFAVIRENZ [Suspect]
     Active Substance: EFAVIRENZ
     Indication: HIV INFECTION
     Dosage: UNK
     Route: 065
  3. LAMIVUDINE. [Concomitant]
     Active Substance: LAMIVUDINE
     Indication: HIV INFECTION
     Dosage: UNK
     Route: 065
  4. NEVIRAPINE. [Concomitant]
     Active Substance: NEVIRAPINE
     Indication: HIV INFECTION
     Dosage: UNK
     Route: 065

REACTIONS (3)
  - Induced labour [Unknown]
  - Maternal exposure during pregnancy [Recovered/Resolved]
  - Stillbirth [Unknown]
